FAERS Safety Report 8952587 (Version 1)
Quarter: 2012Q4

REPORT INFORMATION
  Report Type: 
  Country: US (occurrence: US)
  Receive Date: 20121205
  Receipt Date: 20121205
  Transmission Date: 20130627
  Serious: Yes (Other)
  Sender: FDA-Public Use
  Company Number: US-BRISTOL-MYERS SQUIBB COMPANY-17155151

PATIENT
  Age: 56 Year
  Sex: Male

DRUGS (2)
  1. TRIAMCINOLONE ACETONIDE [Suspect]
     Indication: ARTHRALGIA
     Dosage: 1ml of Triamcinolone (40mg).
  2. LIDOCAINE [Concomitant]
     Indication: ARTHRALGIA

REACTIONS (1)
  - Chorioretinopathy [Recovered/Resolved]
